FAERS Safety Report 11412285 (Version 1)
Quarter: 2015Q3

REPORT INFORMATION
  Report Type: Spontaneous
  Country: US (occurrence: US)
  Receive Date: 20150824
  Receipt Date: 20150824
  Transmission Date: 20151125
  Serious: No
  Sender: FDA-Public Use
  Company Number: US-JNJFOC-20150710941

PATIENT
  Age: 73 Year
  Sex: Female
  Weight: 66.23 kg

DRUGS (9)
  1. SYNTHROID [Concomitant]
     Active Substance: LEVOTHYROXINE SODIUM
     Indication: THYROID DISORDER
     Dosage: 6 YEARS
     Route: 065
  2. ROGAINE [Suspect]
     Active Substance: MINOXIDIL
     Route: 061
  3. ^VITAMINS^ (NOS) [Concomitant]
     Indication: ROUTINE HEALTH MAINTENANCE
     Route: 065
  4. BIOTIN [Concomitant]
     Active Substance: BIOTIN
     Indication: HAIR DISORDER
     Dosage: 2 YEARS
     Route: 065
  5. BIOSIL [Concomitant]
     Indication: HAIR DISORDER
     Dosage: 8 MONTHS
     Route: 065
  6. SIMVASTATIN. [Concomitant]
     Active Substance: SIMVASTATIN
     Indication: BLOOD CHOLESTEROL
     Dosage: 1 NIGHTLY, YEARS
     Route: 065
  7. BIOTIN [Concomitant]
     Active Substance: BIOTIN
     Indication: NAIL DISORDER
     Dosage: 2 YEARS
     Route: 065
  8. ROGAINE [Suspect]
     Active Substance: MINOXIDIL
     Indication: ALOPECIA
     Dosage: MORE HALF A CAPFUL
     Route: 061
  9. BIOSIL [Concomitant]
     Indication: NAIL DISORDER
     Dosage: 8 MONTHS
     Route: 065

REACTIONS (3)
  - Product formulation issue [Unknown]
  - Drug ineffective [Unknown]
  - Incorrect dose administered [Unknown]
